FAERS Safety Report 17826009 (Version 1)
Quarter: 2020Q2

REPORT INFORMATION
  Report Type: Spontaneous
  Country: US (occurrence: US)
  Receive Date: 20200526
  Receipt Date: 20200526
  Transmission Date: 20200714
  Serious: No
  Sender: FDA-Public Use
  Company Number: US-UPSHER-SMITH LABORATORIES, LLC-2019USL00787

PATIENT
  Age: 69 Year
  Sex: Male
  Weight: 78.46 kg

DRUGS (2)
  1. NYAMYC [Suspect]
     Active Substance: NYSTATIN
     Indication: MUSCULOSKELETAL DISORDER
     Dosage: APPLIED ENOUGH TO COVER THE AREA, 2X/DAY
     Route: 061
     Dates: start: 20190927
  2. GABAPENTIN. [Concomitant]
     Active Substance: GABAPENTIN
     Dosage: 400 MG, 1X/DAY AT BEDTIME

REACTIONS (2)
  - Headache [Recovered/Resolved]
  - Dizziness [Recovered/Resolved]

NARRATIVE: CASE EVENT DATE: 20190927
